FAERS Safety Report 25070328 (Version 1)
Quarter: 2025Q1

REPORT INFORMATION
  Report Type: Spontaneous
  Country: IN (occurrence: IN)
  Receive Date: 20250312
  Receipt Date: 20250312
  Transmission Date: 20250409
  Serious: Yes (Other)
  Sender: NOVARTIS
  Company Number: IN-SANDOZ-SDZ2025IN005639

PATIENT
  Age: 31 Year
  Sex: Female

DRUGS (4)
  1. TACROLIMUS [Suspect]
     Active Substance: TACROLIMUS
     Indication: Renal transplant
     Route: 048
  2. MYFORTIC [Suspect]
     Active Substance: MYCOPHENOLATE SODIUM
     Indication: Renal transplant
     Dosage: 720 MG, QD, (360 MG, BID)
     Route: 048
  3. SEPTRAN [Concomitant]
     Indication: Product used for unknown indication
     Route: 065
  4. SEPTRAN [Concomitant]
     Route: 065

REACTIONS (4)
  - New onset diabetes after transplantation [Unknown]
  - Hypertension [Unknown]
  - Hepatic enzyme abnormal [Recovering/Resolving]
  - Product prescribing error [Unknown]

NARRATIVE: CASE EVENT DATE: 20241114
